FAERS Safety Report 20624751 (Version 3)
Quarter: 2022Q2

REPORT INFORMATION
  Report Type: Report from Study
  Country: GR (occurrence: GR)
  Receive Date: 20220323
  Receipt Date: 20220402
  Transmission Date: 20220721
  Serious: Yes (Hospitalization)
  Sender: FDA-Public Use
  Company Number: GR-ABBVIE-22K-066-4324533-00

PATIENT
  Age: 89 Year
  Sex: Male
  Weight: 75 kg

DRUGS (3)
  1. CARBIDOPA\LEVODOPA [Suspect]
     Active Substance: CARBIDOPA\LEVODOPA
     Indication: Parkinson^s disease
     Dosage: MORNING DOSE 12.0ML, CONTINUOUS RATE 3.4ML/H, EXTRA DOSE 1.2ML
     Route: 050
     Dates: start: 20180116, end: 20220311
  2. CARBIDOPA\LEVODOPA [Suspect]
     Active Substance: CARBIDOPA\LEVODOPA
     Dosage: MORNING DOSE 12.0ML; CONTINUOUS RATE 3.4ML/H; EXTRA DOSE 1.2ML
     Route: 050
     Dates: start: 20220330
  3. EXELON [Concomitant]
     Active Substance: RIVASTIGMINE TARTRATE
     Indication: Product used for unknown indication
     Dosage: 3.5MG
     Route: 048

REACTIONS (5)
  - Hypoxia [Recovered/Resolved]
  - Aspiration [Recovered/Resolved]
  - Pyrexia [Recovered/Resolved]
  - Hypophagia [Recovered/Resolved]
  - Product quality issue [Unknown]

NARRATIVE: CASE EVENT DATE: 20220301
